FAERS Safety Report 9312001 (Version 1)
Quarter: 2013Q2

REPORT INFORMATION
  Report Type: Spontaneous
  Country: GB (occurrence: GB)
  Receive Date: 20130528
  Receipt Date: 20130528
  Transmission Date: 20140414
  Serious: Yes (Death)
  Sender: FDA-Public Use
  Company Number: GB-SANOFI-AVENTIS-2013SA052899

PATIENT
  Sex: 0

DRUGS (6)
  1. TAXOTERE [Suspect]
     Indication: HER-2 POSITIVE BREAST CANCER
     Route: 065
     Dates: start: 20130226, end: 20130319
  2. PERTUZUMAB [Suspect]
     Indication: HER-2 POSITIVE BREAST CANCER
     Route: 065
     Dates: start: 20130226, end: 20130319
  3. TRASTUZUMAB [Suspect]
     Indication: HER-2 POSITIVE BREAST CANCER
     Route: 065
     Dates: start: 20130226, end: 20130319
  4. TAZOCIN [Concomitant]
     Dates: start: 20130403, end: 20130404
  5. METRONIDAZOLE [Concomitant]
     Dates: start: 20130403, end: 20130404
  6. GENTAMICIN [Concomitant]
     Dates: start: 20130403, end: 20130404

REACTIONS (1)
  - Abdominal pain [Fatal]
